FAERS Safety Report 4558321-8 (Version None)
Quarter: 2005Q1

REPORT INFORMATION
  Report Type: 
  Country: None (occurrence: None)
  Receive Date: 20050103
  Receipt Date: 20041001
  Transmission Date: 20050727
  Serious: Yes (Other)
  Sender: FDA-Public Use
  Company Number: 2004UW20695

PATIENT
  Age: 61 Year
  Sex: Male
  Weight: 72.5755 kg

DRUGS (7)
  1. CRESTOR [Suspect]
     Indication: BLOOD TRIGLYCERIDES INCREASED
     Dosage: 40 MG PO
     Route: 048
  2. ASPIRIN [Concomitant]
  3. AVANDAMET [Concomitant]
  4. MULTIVITAMIN [Concomitant]
  5. MULTIVITAMIN [Concomitant]
  6. B6 [Concomitant]
  7. FOLIC ACID [Concomitant]

REACTIONS (4)
  - BLOOD CREATINE PHOSPHOKINASE INCREASED [None]
  - FATIGUE [None]
  - IRRITABILITY [None]
  - MYALGIA [None]
